FAERS Safety Report 19847424 (Version 1)
Quarter: 2021Q3

REPORT INFORMATION
  Report Type: Spontaneous
  Country: CN (occurrence: CN)
  Receive Date: 20210917
  Receipt Date: 20210917
  Transmission Date: 20211014
  Serious: Yes (Other)
  Sender: FDA-Public Use
  Company Number: CN-PFIZER INC-202101183475

PATIENT
  Age: 35 Year
  Sex: Female
  Weight: 52 kg

DRUGS (2)
  1. LEVOLEUCOVORIN CALCIUM. [Concomitant]
     Active Substance: LEVOLEUCOVORIN CALCIUM
     Indication: ACUTE LEUKAEMIA
     Dosage: 25 MG, DAILY
     Route: 042
  2. METHOTREXATE SODIUM. [Suspect]
     Active Substance: METHOTREXATE SODIUM
     Indication: ACUTE LEUKAEMIA
     Dosage: 4400 MG, 1X/DAY
     Route: 041
     Dates: start: 20210803, end: 20210811

REACTIONS (2)
  - Laryngeal pain [Recovering/Resolving]
  - Mucosal ulceration [Recovering/Resolving]

NARRATIVE: CASE EVENT DATE: 20210810
